FAERS Safety Report 5677847-7 (Version None)
Quarter: 2008Q1

REPORT INFORMATION
  Report Type: 
  Country: None (occurrence: None)
  Receive Date: 20080318
  Receipt Date: 20080305
  Transmission Date: 20080703
  Serious: Yes (Hospitalization)
  Sender: FDA-Public Use
  Company Number: 2008US000638

PATIENT
  Age: 25 Year
  Sex: Female
  Weight: 59.9 kg

DRUGS (1)
  1. AMEVIVE [Suspect]
     Indication: PSORIASIS
     Dosage: 15 MG, WEEKLY, INTRAMUSCULAR
     Route: 030
     Dates: start: 20050317

REACTIONS (8)
  - ABSCESS [None]
  - CERVICAL VERTEBRAL FRACTURE [None]
  - FACIAL BONES FRACTURE [None]
  - LACERATION [None]
  - PNEUMOTHORAX [None]
  - RESPIRATORY RATE INCREASED [None]
  - ROAD TRAFFIC ACCIDENT [None]
  - WHITE BLOOD CELL COUNT INCREASED [None]
